FAERS Safety Report 9126890 (Version 1)
Quarter: 2013Q1

REPORT INFORMATION
  Report Type: Spontaneous
  Country: DE (occurrence: DE)
  Receive Date: 20130228
  Receipt Date: 20130228
  Transmission Date: 20140127
  Serious: Yes (Other)
  Sender: FDA-Public Use
  Company Number: DE-AMGEN-DEUSP2013014059

PATIENT
  Age: 62 Year
  Sex: Female

DRUGS (3)
  1. ENBREL [Suspect]
     Indication: PSORIATIC ARTHROPATHY
     Dosage: 50 MG, WEEKLY
     Dates: start: 20110321, end: 20121228
  2. ENBREL [Suspect]
     Dosage: 50 MG, WEEKLY
     Dates: start: 2013
  3. CORTISONE [Suspect]
     Dosage: UNK

REACTIONS (2)
  - Abdominal operation [Unknown]
  - Tendonitis [Not Recovered/Not Resolved]
